FAERS Safety Report 6096191-X (Version None)
Quarter: 2009Q1

REPORT INFORMATION
  Report Type: 
  Country: None (occurrence: None)
  Receive Date: 20090227
  Receipt Date: 20080929
  Transmission Date: 20090719
  Serious: No
  Sender: FDA-Public Use
  Company Number: A0749600A

PATIENT
  Age: 71 Year
  Sex: Male

DRUGS (5)
  1. LAMICTAL [Suspect]
     Indication: BIPOLAR DISORDER
     Dosage: 100MG TWICE PER DAY
     Route: 048
  2. ADDERALL 10 [Suspect]
     Indication: ATTENTION DEFICIT/HYPERACTIVITY DISORDER
     Dosage: 20MG PER DAY
  3. ABILIFY [Concomitant]
  4. TRAZODONE HCL [Concomitant]
  5. TRAZODONE HCL [Concomitant]

REACTIONS (1)
  - DENTAL CARIES [None]
